FAERS Safety Report 25500500 (Version 3)
Quarter: 2025Q3

REPORT INFORMATION
  Report Type: Report from Study
  Country: CO (occurrence: CO)
  Receive Date: 20250701
  Receipt Date: 20250925
  Transmission Date: 20251021
  Serious: Yes (Other)
  Sender: TAKEDA
  Company Number: CO-TAKEDA-2025TUS059743

PATIENT
  Age: 70 Year
  Sex: Male
  Weight: 77.5 kg

DRUGS (3)
  1. ADVATE [Suspect]
     Active Substance: ANTIHEMOPHILIC FACTOR, HUMAN RECOMBINANT
     Indication: Factor VIII deficiency
     Dosage: 3500 INTERNATIONAL UNIT, Q12H
     Dates: start: 20250627, end: 20250628
  2. ADVATE [Suspect]
     Active Substance: ANTIHEMOPHILIC FACTOR, HUMAN RECOMBINANT
  3. ADVATE [Suspect]
     Active Substance: ANTIHEMOPHILIC FACTOR, HUMAN RECOMBINANT

REACTIONS (8)
  - Post procedural haemorrhage [Unknown]
  - Haemarthrosis [Recovered/Resolved]
  - Ligament sprain [Recovering/Resolving]
  - Oedema [Unknown]
  - Pain [Unknown]
  - Joint range of motion decreased [Unknown]
  - Movement disorder [Unknown]
  - Fall [Recovering/Resolving]

NARRATIVE: CASE EVENT DATE: 20250627
